FAERS Safety Report 16065981 (Version 4)
Quarter: 2019Q2

REPORT INFORMATION
  Report Type: Spontaneous
  Country: GR (occurrence: GR)
  Receive Date: 20190313
  Receipt Date: 20190404
  Transmission Date: 20190711
  Serious: Yes (Hospitalization)
  Sender: FDA-Public Use
  Company Number: GR-ROCHE-2275774

PATIENT
  Age: 36 Year
  Sex: Female

DRUGS (2)
  1. TAMVELIER [Suspect]
     Active Substance: MOXIFLOXACIN HYDROCHLORIDE
     Indication: ATYPICAL PNEUMONIA
     Route: 048
     Dates: start: 20190220, end: 20190227
  2. TAMIFLU [Suspect]
     Active Substance: OSELTAMIVIR PHOSPHATE
     Indication: ATYPICAL PNEUMONIA
     Route: 048
     Dates: start: 20190220, end: 20190225

REACTIONS (6)
  - Clostridium difficile colitis [Recovering/Resolving]
  - Abdominal pain lower [Recovered/Resolved]
  - Diarrhoea [Recovering/Resolving]
  - Diarrhoea haemorrhagic [Recovered/Resolved]
  - Hyperhidrosis [Recovered/Resolved]
  - Dizziness [Recovered/Resolved]

NARRATIVE: CASE EVENT DATE: 20190227
